FAERS Safety Report 5299817-3 (Version None)
Quarter: 2007Q2

REPORT INFORMATION
  Report Type: 
  Country: None (occurrence: None)
  Receive Date: 20070417
  Receipt Date: 20070405
  Transmission Date: 20071010
  Serious: Yes (Other)
  Sender: FDA-Public Use
  Company Number: US-PFIZER INC-2007028978

PATIENT
  Age: 41 Year
  Sex: Male
  Weight: 107.5 kg

DRUGS (6)
  1. CHANTIX [Suspect]
     Indication: SMOKING CESSATION THERAPY
     Dates: start: 20070327, end: 20070404
  2. GLUCOTROL XL [Concomitant]
  3. AVANDIA [Concomitant]
  4. TRICOR [Concomitant]
  5. CRESTOR [Concomitant]
  6. PRILOSEC [Concomitant]

REACTIONS (2)
  - ABDOMINAL PAIN [None]
  - DYSSTASIA [None]
